FAERS Safety Report 11361628 (Version 1)
Quarter: 2015Q3

REPORT INFORMATION
  Report Type: Spontaneous
  Country: US (occurrence: US)
  Receive Date: 20150810
  Receipt Date: 20150810
  Transmission Date: 20151125
  Serious: No
  Sender: FDA-Public Use
  Company Number: US-B.I. PHARMACEUTICALS,INC./RIDGEFIELD-2015-BI-40961BP

PATIENT
  Age: 51 Year
  Sex: Female
  Weight: 45 kg

DRUGS (2)
  1. ADVAIR HFA [Concomitant]
     Active Substance: FLUTICASONE PROPIONATE\SALMETEROL XINAFOATE
     Indication: INHALATION THERAPY
     Route: 065
  2. SPIRIVA [Suspect]
     Active Substance: TIOTROPIUM BROMIDE MONOHYDRATE
     Indication: SPASMODIC DYSPHONIA
     Dosage: 18 MCG
     Route: 055
     Dates: start: 201506

REACTIONS (2)
  - Rash macular [Unknown]
  - Off label use [Unknown]

NARRATIVE: CASE EVENT DATE: 201506
